FAERS Safety Report 6225687 (Version 12)
Quarter: 2016Q1

REPORT INFORMATION
  Report Type: Spontaneous
  Country: US (occurrence: US)
  Receive Date: 20070129
  Receipt Date: 20160219
  Transmission Date: 20160526
  Serious: Yes (Other)
  Sender: FDA-Public Use
  Company Number: US-ROCHE-428833

PATIENT
  Age: 19 Year
  Sex: Male
  Weight: 66.7 kg

DRUGS (2)
  1. IBUPROFEN. [Concomitant]
     Active Substance: IBUPROFEN
  2. ACCUTANE [Suspect]
     Active Substance: ISOTRETINOIN
     Indication: ACNE CYSTIC
     Route: 065
     Dates: start: 199310, end: 199402

REACTIONS (14)
  - Hiatus hernia [Not Recovered/Not Resolved]
  - Depressed mood [Unknown]
  - Inflammatory bowel disease [Unknown]
  - Proctitis [Not Recovered/Not Resolved]
  - Joint injury [Recovering/Resolving]
  - Morbid thoughts [Unknown]
  - Colitis ulcerative [Unknown]
  - Gastritis [Unknown]
  - Large intestine polyp [Unknown]
  - Rectal polyp [Unknown]
  - Irritable bowel syndrome [Unknown]
  - Emotional distress [Unknown]
  - Haemorrhoids [Unknown]
  - Gastrooesophageal reflux disease [Unknown]

NARRATIVE: CASE EVENT DATE: 199410
